FAERS Safety Report 6616115-3 (Version None)
Quarter: 2010Q1

REPORT INFORMATION
  Report Type: 
  Country: None (occurrence: None)
  Receive Date: 20100305
  Receipt Date: 20100222
  Transmission Date: 20100710
  Serious: Yes (Other)
  Sender: FDA-Public Use
  Company Number: PHEH2007US12136

PATIENT
  Sex: Male

DRUGS (7)
  1. AREDIA [Suspect]
     Dosage: UNK
     Dates: start: 20010101
  2. AMOXICILLIN [Concomitant]
  3. BIAXIN [Concomitant]
  4. TYLENOL-500 [Concomitant]
  5. MORPHINE [Concomitant]
  6. MS CONTIN [Concomitant]
  7. DILAUDID [Concomitant]

REACTIONS (20)
  - BACK DISORDER [None]
  - CHRONIC OBSTRUCTIVE PULMONARY DISEASE [None]
  - DEFORMITY [None]
  - ERECTILE DYSFUNCTION [None]
  - FEMUR FRACTURE [None]
  - INFECTION [None]
  - JAW FRACTURE [None]
  - KYPHOSIS [None]
  - ORAL INFECTION [None]
  - ORAL PAIN [None]
  - OSTEOARTHRITIS [None]
  - OSTEONECROSIS [None]
  - OSTEOPENIA [None]
  - OSTEOPOROSIS [None]
  - PAIN [None]
  - RIB FRACTURE [None]
  - SINUSITIS [None]
  - SPINAL FRACTURE [None]
  - SWELLING [None]
  - TOOTH EXTRACTION [None]
